FAERS Safety Report 12912387 (Version 1)
Quarter: 2016Q4

REPORT INFORMATION
  Report Type: Other
  Country: GB (occurrence: GB)
  Receive Date: 20161104
  Receipt Date: 20161104
  Transmission Date: 20170207
  Serious: Yes (Other)
  Sender: FDA-Public Use
  Company Number: GB-LABORATOIRE HRA PHARMA-1059242

PATIENT
  Age: 24 Year
  Sex: Female
  Weight: 67.6 kg

DRUGS (2)
  1. FEANOLLA (DESOGESTREL) [Concomitant]
     Route: 048
  2. ELLA [Suspect]
     Active Substance: ULIPRISTAL ACETATE
     Route: 048
     Dates: start: 20160926, end: 20160926

REACTIONS (3)
  - Abortion spontaneous [None]
  - Unintended pregnancy [None]
  - Vaginal haemorrhage [None]

NARRATIVE: CASE EVENT DATE: 20161020
